FAERS Safety Report 6110484-9 (Version None)
Quarter: 2009Q1

REPORT INFORMATION
  Report Type: 
  Country: None (occurrence: None)
  Receive Date: 20090310
  Receipt Date: 20090302
  Transmission Date: 20090719
  Serious: Yes (Hospitalization, Other)
  Sender: FDA-Public Use
  Company Number: PHHY2009NO07546

PATIENT
  Sex: Male

DRUGS (15)
  1. RITALIN [Suspect]
     Indication: ATTENTION DEFICIT/HYPERACTIVITY DISORDER
     Dosage: 20MG DAILY
     Dates: start: 20070201
  2. RITALIN [Suspect]
     Dosage: 60MG DAILY
  3. RITALIN [Suspect]
     Dosage: 60MG MORNIGN AND 20 MG AT LUNCH
     Dates: start: 20070329, end: 20080304
  4. SEROQUEL [Concomitant]
     Indication: PSYCHOTIC DISORDER
     Dosage: 1100MG EVENING
     Dates: start: 20070201, end: 20070401
  5. SEROQUEL [Concomitant]
     Dosage: 200MG
     Dates: start: 20070503, end: 20080307
  6. SEROQUEL [Concomitant]
     Dosage: 300MG
  7. LAMICTAL [Concomitant]
     Indication: MOOD SWINGS
     Dosage: UNK
     Dates: start: 20070420
  8. LAMICTAL [Concomitant]
     Dosage: 200MG
     Dates: start: 20070529
  9. LAMICTAL [Concomitant]
     Dosage: 300MG
     Dates: start: 20070718
  10. ZYPREXA [Concomitant]
     Dosage: UNK
     Dates: start: 20070420, end: 20070503
  11. ZYPREXA [Concomitant]
     Dosage: 7.5MG
     Dates: start: 20080307
  12. ZYPREXA [Concomitant]
     Dosage: 15MG DAILY
     Dates: start: 20080307
  13. ZYPREXA [Concomitant]
     Dosage: 25MG DAILY
     Dates: start: 20080312
  14. TRUXAL [Concomitant]
     Indication: ANXIETY
     Dosage: 0+50++50+100 AND 75 MG WHEN NEEDED
     Dates: start: 20080307
  15. TRUXAL [Concomitant]
     Dosage: 400MG
     Dates: start: 20080314

REACTIONS (13)
  - DELUSION [None]
  - DEPRESSION [None]
  - DISTURBANCE IN ATTENTION [None]
  - HALLUCINATION, AUDITORY [None]
  - HALLUCINATION, VISUAL [None]
  - OVERDOSE [None]
  - PARANOIA [None]
  - PARANOID PERSONALITY DISORDER [None]
  - PERSONALITY DISORDER [None]
  - PSYCHOTIC DISORDER [None]
  - RESTLESSNESS [None]
  - SCHIZOPHRENIA [None]
  - SUSPICIOUSNESS [None]
